FAERS Safety Report 5759799-4 (Version None)
Quarter: 2008Q2

REPORT INFORMATION
  Report Type: 
  Country: None (occurrence: None)
  Receive Date: 20080605
  Receipt Date: 20080530
  Transmission Date: 20081010
  Serious: Yes (Hospitalization)
  Sender: FDA-Public Use
  Company Number: D0057375A

PATIENT
  Age: 83 Year
  Sex: Male
  Weight: 60 kg

DRUGS (3)
  1. AVANDIA [Suspect]
     Dosage: 4MG IN THE MORNING
     Route: 048
     Dates: start: 20070101, end: 20080401
  2. AVANDAMET [Suspect]
     Dosage: 1TAB PER DAY
     Route: 048
     Dates: start: 20070101, end: 20080401
  3. DIGITALIS TAB [Concomitant]
     Route: 065
     Dates: end: 20071201

REACTIONS (3)
  - OEDEMA PERIPHERAL [None]
  - PLEURAL EFFUSION [None]
  - SHOCK HYPOGLYCAEMIC [None]
